FAERS Safety Report 14936664 (Version 1)
Quarter: 2018Q2

REPORT INFORMATION
  Report Type: Report from Study
  Country: US (occurrence: US)
  Receive Date: 20180525
  Receipt Date: 20180525
  Transmission Date: 20180711
  Serious: Yes (Other)
  Sender: FDA-Public Use
  Company Number: US-AMGEN-USASL2017063616

PATIENT
  Age: 77 Year
  Sex: Female

DRUGS (7)
  1. NPLATE [Suspect]
     Active Substance: ROMIPLOSTIM
     Dosage: UNK, Q2WK
     Route: 065
  2. NPLATE [Suspect]
     Active Substance: ROMIPLOSTIM
     Dosage: UNK, QWK
     Route: 065
  3. NPLATE [Suspect]
     Active Substance: ROMIPLOSTIM
     Dosage: UNK, Q2WK
     Route: 065
  4. NPLATE [Suspect]
     Active Substance: ROMIPLOSTIM
     Dosage: UNK, Q2WK
     Route: 065
  5. NPLATE [Suspect]
     Active Substance: ROMIPLOSTIM
     Indication: IMMUNE THROMBOCYTOPENIC PURPURA
     Dosage: UNK, QMO
     Route: 065
  6. NPLATE [Suspect]
     Active Substance: ROMIPLOSTIM
     Dosage: UNK, EVERY10 DAYS
     Route: 065
  7. PREDNISONE. [Suspect]
     Active Substance: PREDNISONE
     Indication: ARTHRITIS
     Dosage: UNK
     Route: 065

REACTIONS (32)
  - Rib fracture [Not Recovered/Not Resolved]
  - Platelet count abnormal [Unknown]
  - Thyroid disorder [Unknown]
  - Feeling abnormal [Unknown]
  - Intentional product misuse [Unknown]
  - Neuropathy peripheral [Recovering/Resolving]
  - Dysphonia [Unknown]
  - Hypoaesthesia [Recovering/Resolving]
  - Anxiety [Unknown]
  - Hypoacusis [Unknown]
  - Trigger finger [Unknown]
  - Blood creatinine increased [Unknown]
  - Colon cancer stage IV [Unknown]
  - Balance disorder [Recovering/Resolving]
  - Adverse event [Unknown]
  - Dehydration [Not Recovered/Not Resolved]
  - Platelet count decreased [Unknown]
  - Flatulence [Unknown]
  - Hypertension [Unknown]
  - Cyst [Unknown]
  - Foot deformity [Unknown]
  - Abdominal distension [Unknown]
  - Diarrhoea [Recovered/Resolved]
  - Pain in extremity [Unknown]
  - Eating disorder [Unknown]
  - Skin tightness [Unknown]
  - Anaemia [Not Recovered/Not Resolved]
  - Arthritis [Unknown]
  - Diabetes mellitus [Not Recovered/Not Resolved]
  - Fatigue [Unknown]
  - Sneezing [Unknown]
  - Weight decreased [Unknown]

NARRATIVE: CASE EVENT DATE: 2016
